FAERS Safety Report 19509491 (Version 1)
Quarter: 2021Q3

REPORT INFORMATION
  Report Type: Report from Study
  Country: CO (occurrence: CO)
  Receive Date: 20210708
  Receipt Date: 20210708
  Transmission Date: 20211014
  Serious: Yes (Other)
  Sender: FDA-Public Use
  Company Number: CO-JNJFOC-20200919581

PATIENT
  Age: 82 Year
  Sex: Female
  Weight: 49 kg

DRUGS (3)
  1. PREDNISOLONE. [Concomitant]
     Active Substance: PREDNISOLONE
     Indication: PRODUCT USED FOR UNKNOWN INDICATION
  2. SIMPONI [Suspect]
     Active Substance: GOLIMUMAB
     Indication: RHEUMATOID ARTHRITIS
     Route: 058
     Dates: start: 20200225, end: 20200925
  3. SIMPONI [Suspect]
     Active Substance: GOLIMUMAB
     Dosage: LAST ADMINISTRATION DATE WAS ON 25?SEP?2020.
     Route: 058
     Dates: start: 20200625

REACTIONS (5)
  - Wrong technique in product usage process [Recovered/Resolved]
  - Nasopharyngitis [Recovered/Resolved]
  - Ear disorder [Recovered/Resolved]
  - Administration site pain [Recovered/Resolved]
  - Dizziness [Recovered/Resolved]

NARRATIVE: CASE EVENT DATE: 202007
